FAERS Safety Report 17991997 (Version 1)
Quarter: 2020Q3

REPORT INFORMATION
  Report Type: Spontaneous
  Country: MX (occurrence: MX)
  Receive Date: 20200707
  Receipt Date: 20200707
  Transmission Date: 20201103
  Serious: Yes (Other)
  Sender: FDA-Public Use
  Company Number: MX-SYNEX-T202003240

PATIENT
  Age: 33 Year
  Sex: Male
  Weight: 73 kg

DRUGS (5)
  1. CEFTRIAXONE. [Concomitant]
     Active Substance: CEFTRIAXONE
     Indication: ANTIBIOTIC THERAPY
     Dosage: 1 GRAM, Q8H
     Route: 042
     Dates: start: 20200623
  2. INOMAX [Suspect]
     Active Substance: NITRIC OXIDE
     Indication: COVID-19
  3. INOMAX [Suspect]
     Active Substance: NITRIC OXIDE
     Indication: HYPOXIA
     Dosage: 20 PPM (INHALATION)
     Route: 055
     Dates: start: 20200628, end: 20200629
  4. IMIPENEM [Concomitant]
     Active Substance: IMIPENEM
     Indication: ANTIBIOTIC THERAPY
     Dosage: 1 GRAM, Q12H
     Route: 042
     Dates: start: 20200623
  5. NOREPINEPHRINE. [Concomitant]
     Active Substance: NOREPINEPHRINE
     Indication: VASODILATATION
     Dosage: UNK (DR)
     Route: 042
     Dates: start: 20200623

REACTIONS (3)
  - Oxygen saturation decreased [Unknown]
  - Product use issue [Unknown]
  - Product use in unapproved indication [Unknown]

NARRATIVE: CASE EVENT DATE: 202006
